FAERS Safety Report 8789472 (Version 1)
Quarter: 2012Q4

REPORT INFORMATION
  Report Type: Spontaneous
  Country: US (occurrence: None)
  Receive Date: 20120906
  Receipt Date: 20120906
  Transmission Date: 20130627
  Serious: Yes (Life-Threatening, Hospitalization, Other)
  Sender: FDA-Public Use
  Company Number: ACET20120012

PATIENT
  Age: 22 Year
  Sex: Female

DRUGS (3)
  1. Q-PAP TABLETS 325MG (PARACETAMOL) (TABLETS) [Suspect]
     Dosage: 500 mg, 12 tablets per day for 10-14 days
  2. TYLENOL #3 [Suspect]
     Dosage: apap 300 mg with codeine 30 mg, six to eight tablets per day for 10-14
  3. PRENATAL VITAMIN (ERGOCALCIFEROL, ASCORBIC ACID, PYRIDOXINE HYDROCHLORIDE, CYANOCOBALAMIN, RETINOL PALMITATE, RIBOFLAVIN, NICOTANIMDE, CALCIUM PANTOTHENATE, THIAMINE MONONITRATE) [Concomitant]

REACTIONS (4)
  - Toxicity to various agents [None]
  - Hepatic failure [None]
  - Liver transplant [None]
  - Metabolic acidosis [None]
